FAERS Safety Report 9135226 (Version 1)
Quarter: 2013Q1

REPORT INFORMATION
  Report Type: Other
  Country: US (occurrence: US)
  Receive Date: 20130304
  Receipt Date: 20130304
  Transmission Date: 20140127
  Serious: Yes (Hospitalization)
  Sender: FDA-Public Use
  Company Number: US-ENDO PHARMACEUTICALS INC.-PERC20120001

PATIENT
  Age: 57 Year
  Sex: Female
  Weight: 59.02 kg

DRUGS (6)
  1. PERCOCET [Suspect]
     Indication: BACK PAIN
     Dosage: 60/1950 MG
     Route: 048
     Dates: start: 201103
  2. IBUPROFEN [Suspect]
     Indication: BACK PAIN
     Dosage: UNK
     Route: 048
     Dates: start: 201103
  3. DIAZEPAM [Suspect]
     Indication: BACK PAIN
     Route: 048
     Dates: start: 201103
  4. HYDROMORPHONE [Suspect]
     Indication: BACK PAIN
     Dosage: 2 MG
     Dates: start: 201103
  5. GABAPENTIN [Suspect]
     Indication: BACK PAIN
     Route: 048
     Dates: start: 201103
  6. CHANTIX [Suspect]
     Indication: SMOKING CESSATION THERAPY
     Route: 048
     Dates: start: 20111015

REACTIONS (2)
  - Back pain [Not Recovered/Not Resolved]
  - Drug ineffective [Unknown]
